FAERS Safety Report 14140892 (Version 2)
Quarter: 2019Q1

REPORT INFORMATION
  Report Type: Report from Study
  Country: NL (occurrence: NL)
  Receive Date: 20171030
  Receipt Date: 20190321
  Transmission Date: 20190417
  Serious: Yes (Life-Threatening)
  Sender: FDA-Public Use
  Company Number: NL-BRISTOL-MYERS SQUIBB COMPANY-BMS-2017-097229

PATIENT
  Age: 64 Year
  Sex: Male

DRUGS (1)
  1. NIVOLUMAB [Suspect]
     Active Substance: NIVOLUMAB
     Indication: NON-SMALL CELL LUNG CANCER STAGE IV
     Dosage: 225 MG, Q2WK
     Route: 042
     Dates: start: 20170125, end: 20171015

REACTIONS (1)
  - Wound dehiscence [Not Recovered/Not Resolved]

NARRATIVE: CASE EVENT DATE: 20171015
